FAERS Safety Report 19380676 (Version 1)
Quarter: 2021Q2

REPORT INFORMATION
  Report Type: Spontaneous
  Country: FI (occurrence: FI)
  Receive Date: 20210607
  Receipt Date: 20210607
  Transmission Date: 20210717
  Serious: Yes (Hospitalization)
  Sender: FDA-Public Use
  Company Number: FI-009507513-2105FIN007366

PATIENT
  Age: 1 Year
  Sex: Male

DRUGS (2)
  1. VARIVAX [Suspect]
     Active Substance: VARICELLA-ZOSTER VIRUS STRAIN OKA/MERCK LIVE ANTIGEN
     Indication: IMMUNISATION
     Dosage: 1 DOSAGE FORM
     Route: 030
     Dates: start: 20210428, end: 20210428
  2. STERILE DILUENT (WATER) [Suspect]
     Active Substance: WATER
     Indication: IMMUNISATION
     Dosage: 1,DF,X1
     Route: 030
     Dates: start: 20210428, end: 20210428

REACTIONS (7)
  - CSF white blood cell count increased [Recovering/Resolving]
  - Cerebellar ataxia [Recovering/Resolving]
  - Human rhinovirus test positive [Recovering/Resolving]
  - Enterovirus test positive [Recovering/Resolving]
  - Balance disorder [Recovering/Resolving]
  - Encephalitis viral [Recovering/Resolving]
  - Gait disturbance [Recovering/Resolving]

NARRATIVE: CASE EVENT DATE: 20210502
